FAERS Safety Report 19509021 (Version 2)
Quarter: 2022Q1

REPORT INFORMATION
  Report Type: Report from Study
  Country: CA (occurrence: CA)
  Receive Date: 20210708
  Receipt Date: 20220314
  Transmission Date: 20220423
  Serious: Yes (Other)
  Sender: FDA-Public Use
  Company Number: CA-NOVARTISPH-PHHY2019CA131845

PATIENT
  Age: 58 Year
  Sex: Female

DRUGS (7)
  1. COSENTYX [Suspect]
     Active Substance: SECUKINUMAB
     Indication: Psoriasis
     Dosage: 300 MG, QW (SENSOREADY PEN)
     Route: 058
     Dates: start: 20190603
  2. COSENTYX [Suspect]
     Active Substance: SECUKINUMAB
     Dosage: 300 MG, QMO
     Route: 058
     Dates: start: 20190801
  3. COSENTYX [Suspect]
     Active Substance: SECUKINUMAB
     Dosage: 300 MG, QMO
     Route: 058
     Dates: start: 20191003, end: 20211018
  4. METHOTREXATE [Concomitant]
     Active Substance: METHOTREXATE
     Indication: Product used for unknown indication
     Route: 065
  5. LYDERM [Concomitant]
     Indication: Product used for unknown indication
     Route: 065
  6. HYDROXYZINE [Concomitant]
     Active Substance: HYDROXYZINE HYDROCHLORIDE
     Indication: Product used for unknown indication
     Route: 065
  7. OTEZLA [Concomitant]
     Active Substance: APREMILAST
     Indication: Product used for unknown indication
     Route: 065

REACTIONS (11)
  - Blood pressure systolic increased [Unknown]
  - Pruritus [Recovering/Resolving]
  - Pain of skin [Unknown]
  - Skin plaque [Unknown]
  - Skin burning sensation [Unknown]
  - Influenza like illness [Unknown]
  - Nasal congestion [Recovering/Resolving]
  - Headache [Unknown]
  - Secretion discharge [Unknown]
  - Sinusitis [Unknown]
  - Joint injury [Unknown]

NARRATIVE: CASE EVENT DATE: 20190603
